FAERS Safety Report 4339257-4 (Version None)
Quarter: 2004Q2

REPORT INFORMATION
  Report Type: 
  Country: None (occurrence: None)
  Receive Date: 20040412
  Receipt Date: 20040402
  Transmission Date: 20050107
  Serious: Yes (Death, Hospitalization, Other)
  Sender: FDA-Public Use
  Company Number: 2004207185US

PATIENT
  Age: 34 Year
  Sex: Female

DRUGS (32)
  1. XANAX [Suspect]
     Indication: ANXIETY
     Dosage: SEE IMAGE
     Dates: start: 20010901, end: 20010917
  2. XANAX [Suspect]
     Indication: ANXIETY
     Dosage: SEE IMAGE
     Dates: start: 20010918, end: 20010918
  3. XANAX [Suspect]
     Indication: ANXIETY
     Dosage: SEE IMAGE
     Dates: start: 20010919, end: 20010920
  4. XANAX [Suspect]
     Indication: ANXIETY
     Dosage: SEE IMAGE
     Dates: start: 20010921, end: 20010923
  5. XANAX [Suspect]
     Indication: ANXIETY
     Dosage: SEE IMAGE
     Dates: start: 20010924
  6. DURAGESIC [Suspect]
     Indication: PAIN
     Dosage: 25 UG, 1 IN 72 HOUR, TRANSDERMAL
     Route: 062
     Dates: start: 20010910, end: 20010930
  7. EFFEXOR XR [Suspect]
     Indication: DEPRESSION
     Dosage: SEE IMAGE
     Dates: start: 20010919, end: 20010919
  8. EFFEXOR XR [Suspect]
     Indication: DEPRESSION
     Dosage: SEE IMAGE
     Dates: start: 20010920, end: 20010922
  9. EFFEXOR XR [Suspect]
     Indication: DEPRESSION
     Dosage: SEE IMAGE
     Dates: start: 20010923, end: 20010924
  10. EFFEXOR XR [Suspect]
     Indication: DEPRESSION
     Dosage: SEE IMAGE
     Dates: start: 20010910, end: 20040901
  11. EFFEXOR XR [Suspect]
     Indication: DEPRESSION
     Dosage: SEE IMAGE
     Dates: start: 20010925
  12. AMBIEN [Suspect]
     Indication: INSOMNIA
     Dosage: PRN,
     Dates: start: 20010901
  13. PHENERGAN [Suspect]
     Indication: NAUSEA
     Dosage: 25 MG,
     Dates: start: 20010913
  14. HUMULIN 70/30 (INSULIN HUMAN INJECTION, ISOPHANE) [Concomitant]
  15. NEURONTIN [Concomitant]
  16. ZYPREXA [Concomitant]
  17. LIPITOR [Concomitant]
  18. PREMARIN [Concomitant]
  19. DOXEPIN (DOXEPIN) [Concomitant]
  20. CIPRO (CIPROFLOXACIN HYDROCHLORIDE) TABLET [Concomitant]
  21. PROZAC [Concomitant]
  22. RITALIN [Concomitant]
  23. CLARITIN [Concomitant]
  24. SYNTHROID [Concomitant]
  25. REMERON [Concomitant]
  26. REGLAN [Concomitant]
  27. BACTRIM DS [Concomitant]
  28. DIFLUCAN [Concomitant]
  29. WELLBUTRIN SR [Concomitant]
  30. CIPRO (CIPROFLOXACIN HYDROCHLORIDE) SOLUTION, OPHTHALMIC [Concomitant]
  31. MICRO-K [Concomitant]
  32. HUMALOG [Concomitant]

REACTIONS (29)
  - APATHY [None]
  - ASPIRATION [None]
  - BACTERIA URINE [None]
  - BLOOD GLUCOSE FLUCTUATION [None]
  - BLOOD PH DECREASED [None]
  - BLOOD THYROID STIMULATING HORMONE INCREASED [None]
  - CANDIDIASIS [None]
  - CANDIDURIA [None]
  - CARDIO-RESPIRATORY ARREST [None]
  - COMA [None]
  - CONVULSION [None]
  - CORNEAL ABRASION [None]
  - CULTURE URINE POSITIVE [None]
  - DECREASED APPETITE [None]
  - DEPRESSION [None]
  - DIABETIC EYE DISEASE [None]
  - DISTURBANCE IN ATTENTION [None]
  - DRUG INEFFECTIVE [None]
  - FATIGUE [None]
  - HYPERSENSITIVITY [None]
  - HYPOGLYCAEMIA [None]
  - LETHARGY [None]
  - MULTIPLE DRUG OVERDOSE [None]
  - NAUSEA [None]
  - NEUROPATHY [None]
  - PANIC ATTACK [None]
  - SEDATION [None]
  - SOCIAL PHOBIA [None]
  - URINARY TRACT INFECTION [None]
